FAERS Safety Report 10176362 (Version 1)
Quarter: 2014Q2

REPORT INFORMATION
  Report Type: Spontaneous
  Country: US (occurrence: None)
  Receive Date: 20140514
  Receipt Date: 20140514
  Transmission Date: 20141212
  Serious: Yes (Other)
  Sender: FDA-Public Use
  Company Number: AUR-APL-2014-05577

PATIENT
  Age: 56 Year
  Sex: Male

DRUGS (6)
  1. OLANZAPINE (OLANZAPINE) [Suspect]
     Indication: DELIRIUM
     Dosage: UP TO 20 MG DAILY, UNKNOWN
  2. OLANZAPINE (OLANZAPINE) [Suspect]
     Indication: AGITATION
     Dosage: UP TO 20 MG DAILY, UNKNOWN
  3. CHLORPROMAZINE (CHLORPROMAZINE) [Suspect]
     Indication: DELIRIUM
     Dosage: UP TO125 MG DAILY, UNKNOWN
  4. CHLORPROMAZINE (CHLORPROMAZINE) [Suspect]
     Indication: AGITATION
     Dosage: UP TO125 MG DAILY, UNKNOWN
  5. LORAZEPAM (LORAZEPAM) [Suspect]
     Indication: DELIRIUM
     Dosage: UP TO 6 MG/DAY, UNKNOWN
  6. LORAZEPAM (LORAZEPAM) [Suspect]
     Indication: AGITATION
     Dosage: UP TO 6 MG/DAY, UNKNOWN

REACTIONS (3)
  - Drug ineffective [None]
  - Agitation [None]
  - Aggression [None]
